FAERS Safety Report 20983976 (Version 1)
Quarter: 2022Q2

REPORT INFORMATION
  Report Type: Report from Study
  Country: GB (occurrence: GB)
  Receive Date: 20220621
  Receipt Date: 20220621
  Transmission Date: 20220720
  Serious: Yes (Hospitalization)
  Sender: FDA-Public Use
  Company Number: GB-NOVARTISPH-NVSC2022GB104579

PATIENT
  Sex: Male

DRUGS (3)
  1. HYRIMOZ [Suspect]
     Active Substance: ADALIMUMAB-ADAZ
     Indication: Iridocyclitis
     Dosage: 40 MG, EOW
     Route: 058
     Dates: end: 20220310
  2. HYRIMOZ [Suspect]
     Active Substance: ADALIMUMAB-ADAZ
     Dosage: 40 MG (FREQUENCY- WEEK 1)
     Route: 058
     Dates: start: 20220310
  3. HYRIMOZ [Suspect]
     Active Substance: ADALIMUMAB-ADAZ
     Dosage: 80 MG (FREQUENCY- WEEK 0)
     Route: 058

REACTIONS (3)
  - Chronic respiratory disease [Unknown]
  - Dyspnoea [Unknown]
  - Visual impairment [Unknown]
